FAERS Safety Report 20852594 (Version 4)
Quarter: 2023Q1

REPORT INFORMATION
  Report Type: Spontaneous
  Country: CA (occurrence: CA)
  Receive Date: 20220520
  Receipt Date: 20230215
  Transmission Date: 20230418
  Serious: Yes (Other)
  Sender: FDA-Public Use
  Company Number: CA-NOVARTISPH-NVSC2022CA111007

PATIENT
  Age: 70 Year
  Sex: Female
  Weight: 75 kg

DRUGS (86)
  1. NEORAL [Suspect]
     Active Substance: CYCLOSPORINE
     Indication: Rheumatoid arthritis
     Dosage: UNK
     Route: 048
  2. NEORAL [Suspect]
     Active Substance: CYCLOSPORINE
     Dosage: UNK
     Route: 058
  3. METHOTREXATE [Suspect]
     Active Substance: METHOTREXATE
     Indication: Rheumatoid arthritis
     Dosage: 25 MG, QW
     Route: 058
  4. METHOTREXATE [Suspect]
     Active Substance: METHOTREXATE
     Dosage: 10 MG, QW (SOLUTION FOR INJECTION)
     Route: 058
  5. METHOTREXATE [Suspect]
     Active Substance: METHOTREXATE
     Dosage: 15 MG, QD
     Route: 048
  6. METHOTREXATE [Suspect]
     Active Substance: METHOTREXATE
     Dosage: UNK
     Route: 065
  7. METHOTREXATE [Suspect]
     Active Substance: METHOTREXATE
     Dosage: 500 MG, QD
     Route: 065
  8. PREGABALIN [Suspect]
     Active Substance: PREGABALIN
     Indication: Rheumatoid arthritis
     Dosage: UNK
     Route: 048
  9. RITUXIMAB [Suspect]
     Active Substance: RITUXIMAB
     Indication: Rheumatoid arthritis
     Dosage: UNK
     Route: 042
  10. CYCLOSPORINE [Suspect]
     Active Substance: CYCLOSPORINE
     Indication: Rheumatoid arthritis
     Dosage: UNK
     Route: 065
  11. PREGABALIN [Suspect]
     Active Substance: PREGABALIN
     Indication: Rheumatoid arthritis
     Dosage: UNK
     Route: 065
  12. PREGABALIN [Suspect]
     Active Substance: PREGABALIN
     Dosage: UNK
     Route: 048
  13. METFORMIN HYDROCHLORIDE [Suspect]
     Active Substance: METFORMIN HYDROCHLORIDE
     Indication: Diabetes mellitus
     Dosage: 500 MG, QD
     Route: 065
  14. METFORMIN HYDROCHLORIDE [Suspect]
     Active Substance: METFORMIN HYDROCHLORIDE
     Indication: Rheumatoid arthritis
     Dosage: 1000 MG, QD (TABLET)
     Route: 065
  15. METFORMIN HYDROCHLORIDE [Suspect]
     Active Substance: METFORMIN HYDROCHLORIDE
     Dosage: 500 MG, Q12H
     Route: 065
  16. METFORMIN HYDROCHLORIDE [Suspect]
     Active Substance: METFORMIN HYDROCHLORIDE
     Dosage: 500 MG
     Route: 065
  17. MYCOPHENOLATE MOFETIL [Suspect]
     Active Substance: MYCOPHENOLATE MOFETIL
     Indication: Product used for unknown indication
     Dosage: UNK
     Route: 065
  18. LEFLUNOMIDE [Suspect]
     Active Substance: LEFLUNOMIDE
     Indication: Product used for unknown indication
     Dosage: 20 MG
     Route: 065
  19. SULFASALAZINE [Suspect]
     Active Substance: SULFASALAZINE
     Indication: Rheumatoid arthritis
     Dosage: 1 G, Q12H
     Route: 048
  20. SULFASALAZINE [Suspect]
     Active Substance: SULFASALAZINE
     Dosage: 1.5 G, Q12H
     Route: 065
  21. SULFASALAZINE [Suspect]
     Active Substance: SULFASALAZINE
     Dosage: UNK
     Route: 065
  22. SULFASALAZINE [Suspect]
     Active Substance: SULFASALAZINE
     Dosage: 1 G
     Route: 065
  23. ACTEMRA [Suspect]
     Active Substance: TOCILIZUMAB
     Indication: Product used for unknown indication
     Dosage: UNK
     Route: 065
  24. ACTEMRA [Suspect]
     Active Substance: TOCILIZUMAB
     Dosage: UNK
     Route: 058
  25. ACTEMRA [Suspect]
     Active Substance: TOCILIZUMAB
     Dosage: UNK
     Route: 065
  26. ARAVA [Suspect]
     Active Substance: LEFLUNOMIDE
     Indication: Product used for unknown indication
     Dosage: UNK
     Route: 048
  27. ARAVA [Suspect]
     Active Substance: LEFLUNOMIDE
     Dosage: 81 MG, QD
     Route: 065
  28. .ALPHA.-TOCOPHEROL, D- [Suspect]
     Active Substance: .ALPHA.-TOCOPHEROL, D-
     Indication: Product used for unknown indication
     Dosage: UNK
     Route: 065
  29. DESOXIMETASONE [Suspect]
     Active Substance: DESOXIMETASONE
     Indication: Product used for unknown indication
     Dosage: UNK, CREAM
     Route: 065
  30. DESOXIMETASONE [Suspect]
     Active Substance: DESOXIMETASONE
     Dosage: UNK
     Route: 065
  31. ENBREL [Suspect]
     Active Substance: ETANERCEPT
     Indication: Rheumatoid arthritis
     Dosage: 50 MG, QW
     Route: 058
  32. ENBREL [Suspect]
     Active Substance: ETANERCEPT
     Dosage: 1 DOSAGE FORM, QD
     Route: 058
  33. ENBREL [Suspect]
     Active Substance: ETANERCEPT
     Dosage: 1 DOSAGE FORM, QW
     Route: 058
  34. ENBREL [Suspect]
     Active Substance: ETANERCEPT
     Dosage: 50 MG, QW
     Route: 058
  35. ENBREL [Suspect]
     Active Substance: ETANERCEPT
     Dosage: 50 MG, QW
     Route: 058
  36. ENBREL [Suspect]
     Active Substance: ETANERCEPT
     Dosage: 2 DOSAGE FORM, QW
     Route: 058
  37. GOLD [Suspect]
     Active Substance: GOLD
     Indication: Product used for unknown indication
     Dosage: UNK
     Route: 065
  38. HUMIRA [Suspect]
     Active Substance: ADALIMUMAB
     Indication: Rheumatoid arthritis
     Dosage: 40 MG, QW
     Route: 058
  39. HYDROXYCHLOROQUINE [Suspect]
     Active Substance: HYDROXYCHLOROQUINE
     Indication: Rheumatoid arthritis
     Dosage: 400 MG, QD
     Route: 065
  40. HYDROXYCHLOROQUINE SULFATE [Suspect]
     Active Substance: HYDROXYCHLOROQUINE SULFATE
     Indication: Rheumatoid arthritis
     Dosage: UNK
     Route: 065
  41. HYDROXYCHLOROQUINE SULFATE [Suspect]
     Active Substance: HYDROXYCHLOROQUINE SULFATE
     Dosage: 400 MG, QD
     Route: 048
  42. HYDROXYCHLOROQUINE SULFATE [Suspect]
     Active Substance: HYDROXYCHLOROQUINE SULFATE
     Dosage: 200 MG
     Route: 048
  43. HYDROXYCHLOROQUINE SULFATE [Suspect]
     Active Substance: HYDROXYCHLOROQUINE SULFATE
     Dosage: 100 MG, QD
     Route: 048
  44. HYDROXYCHLOROQUINE SULFATE [Suspect]
     Active Substance: HYDROXYCHLOROQUINE SULFATE
     Dosage: 200 MG
     Route: 065
  45. HYDROXYCHLOROQUINE SULFATE [Suspect]
     Active Substance: HYDROXYCHLOROQUINE SULFATE
     Dosage: 100 MG, QD
     Route: 065
  46. ORENCIA [Suspect]
     Active Substance: ABATACEPT
     Indication: Rheumatoid arthritis
     Dosage: UNK
     Route: 042
  47. ORENCIA [Suspect]
     Active Substance: ABATACEPT
     Dosage: UNK
     Route: 065
  48. PLAQUENIL [Suspect]
     Active Substance: HYDROXYCHLOROQUINE SULFATE
     Indication: Product used for unknown indication
     Dosage: UNK
     Route: 065
  49. SIMPONI [Suspect]
     Active Substance: GOLIMUMAB
     Indication: Rheumatoid arthritis
     Dosage: UNK
     Route: 058
  50. GOLD SODIUM THIOMALATE [Suspect]
     Active Substance: GOLD SODIUM THIOMALATE
     Indication: Product used for unknown indication
     Dosage: UNK
     Route: 051
  51. GOLD SODIUM THIOMALATE [Suspect]
     Active Substance: GOLD SODIUM THIOMALATE
     Dosage: 1.5 MG
     Route: 051
  52. XELJANZ [Suspect]
     Active Substance: TOFACITINIB CITRATE
     Indication: Rheumatoid arthritis
     Dosage: 5 MG, Q12H
     Route: 048
  53. XELJANZ [Suspect]
     Active Substance: TOFACITINIB CITRATE
     Dosage: 2.5 MG, QD
     Route: 048
  54. REMICADE [Suspect]
     Active Substance: INFLIXIMAB
     Indication: Rheumatoid arthritis
     Dosage: UNK
     Route: 042
  55. REMICADE [Suspect]
     Active Substance: INFLIXIMAB
     Dosage: 3 MG/KG
     Route: 042
  56. CIMZIA [Suspect]
     Active Substance: CERTOLIZUMAB PEGOL
     Indication: Product used for unknown indication
     Dosage: UNK
     Route: 058
  57. ALTACE [Suspect]
     Active Substance: RAMIPRIL
     Indication: Hypertension
     Dosage: 5 MG, QD
     Route: 065
  58. ALTACE [Suspect]
     Active Substance: RAMIPRIL
     Dosage: UNK
     Route: 065
  59. POTASSIUM CHLORIDE [Concomitant]
     Active Substance: POTASSIUM CHLORIDE
     Indication: Product used for unknown indication
     Dosage: UNK
     Route: 065
  60. MORPHINE [Concomitant]
     Active Substance: MORPHINE
     Indication: Product used for unknown indication
     Dosage: UNK
     Route: 065
  61. ROSUVASTATIN CALCIUM [Concomitant]
     Active Substance: ROSUVASTATIN CALCIUM
     Indication: Hypercholesterolaemia
     Dosage: 20 MG, QD
     Route: 065
  62. ROSUVASTATIN CALCIUM [Concomitant]
     Active Substance: ROSUVASTATIN CALCIUM
     Dosage: UNK
     Route: 065
  63. ACETAMINOPHEN [Concomitant]
     Active Substance: ACETAMINOPHEN
     Indication: Product used for unknown indication
     Dosage: UNK
     Route: 065
  64. PIROXICAM [Concomitant]
     Active Substance: PIROXICAM
     Indication: Product used for unknown indication
     Dosage: UNK
     Route: 065
  65. CODEINE [Concomitant]
     Active Substance: CODEINE
     Indication: Product used for unknown indication
     Dosage: UNK
     Route: 065
  66. LEVOTHYROXINE SODIUM [Concomitant]
     Active Substance: LEVOTHYROXINE SODIUM
     Indication: Product used for unknown indication
     Dosage: UNK
     Route: 065
  67. FOLIC ACID [Concomitant]
     Active Substance: FOLIC ACID
     Indication: Product used for unknown indication
     Dosage: 1.0 DOSAGE FORM
     Route: 065
  68. ERGOCALCIFEROL [Concomitant]
     Active Substance: ERGOCALCIFEROL
     Indication: Product used for unknown indication
     Dosage: 1 MG, QD
     Route: 065
  69. ERGOCALCIFEROL [Concomitant]
     Active Substance: ERGOCALCIFEROL
     Dosage: 1 MG, QD
     Route: 065
  70. ICOSAPENT [Concomitant]
     Active Substance: ICOSAPENT
     Indication: Product used for unknown indication
     Dosage: UNK
     Route: 065
  71. DOCONEXENT [Concomitant]
     Active Substance: DOCONEXENT
     Indication: Product used for unknown indication
     Dosage: UNK
     Route: 065
  72. ASPIRIN [Concomitant]
     Active Substance: ASPIRIN
     Indication: Product used for unknown indication
     Dosage: 81 MG, QD
     Route: 065
  73. PREDNISONE [Concomitant]
     Active Substance: PREDNISONE
     Indication: Rheumatoid arthritis
     Dosage: 1 MG, QD
     Route: 065
  74. PREDNISONE [Concomitant]
     Active Substance: PREDNISONE
     Dosage: 25 MG, QD
     Route: 066
  75. PREDNISONE [Concomitant]
     Active Substance: PREDNISONE
     Dosage: UNK
     Route: 048
  76. MOXIFLOXACIN HYDROCHLORIDE [Concomitant]
     Active Substance: MOXIFLOXACIN HYDROCHLORIDE
     Indication: Product used for unknown indication
     Dosage: UNK
     Route: 065
  77. MOXIFLOXACIN HYDROCHLORIDE [Concomitant]
     Active Substance: MOXIFLOXACIN HYDROCHLORIDE
     Dosage: UNK
     Route: 065
  78. OLMESARTAN MEDOXOMIL [Concomitant]
     Active Substance: OLMESARTAN MEDOXOMIL
     Indication: Product used for unknown indication
     Dosage: 40 MG
     Route: 065
  79. VITAMIN C [Concomitant]
     Active Substance: ASCORBIC ACID
     Indication: Product used for unknown indication
     Dosage: 600 MG, QD (2 EVERY 1 DAYS)
     Route: 065
  80. IMMUNOGLOBULIN [Concomitant]
     Indication: Product used for unknown indication
     Dosage: 20 MG (CYCLICAL)
     Route: 065
  81. CALCIUM GLUCONATE [Concomitant]
     Active Substance: CALCIUM GLUCONATE
     Indication: Product used for unknown indication
     Dosage: UNK
     Route: 065
  82. COD LIVER OIL [Concomitant]
     Active Substance: COD LIVER OIL
     Indication: Product used for unknown indication
     Dosage: UNK
     Route: 065
  83. COD LIVER OIL [Concomitant]
     Active Substance: COD LIVER OIL
     Dosage: UNK
     Route: 065
  84. FLUCONAZOLE [Concomitant]
     Active Substance: FLUCONAZOLE
     Indication: Product used for unknown indication
     Dosage: 150 MG, QD
     Route: 065
  85. HYDROXYCHLOROQUINE [Concomitant]
     Active Substance: HYDROXYCHLOROQUINE
     Indication: Product used for unknown indication
     Dosage: 100 MG, QD
     Route: 065
  86. MAGNESIUM [Concomitant]
     Active Substance: MAGNESIUM
     Indication: Product used for unknown indication
     Dosage: UNK
     Route: 065

REACTIONS (62)
  - Anaphylactic reaction [Not Recovered/Not Resolved]
  - Arthralgia [Not Recovered/Not Resolved]
  - Blood pressure increased [Not Recovered/Not Resolved]
  - Blood glucose increased [Not Recovered/Not Resolved]
  - Bronchitis [Not Recovered/Not Resolved]
  - Cataract [Not Recovered/Not Resolved]
  - C-reactive protein increased [Not Recovered/Not Resolved]
  - Colitis microscopic [Not Recovered/Not Resolved]
  - Condition aggravated [Not Recovered/Not Resolved]
  - Diarrhoea [Not Recovered/Not Resolved]
  - Diverticulitis [Not Recovered/Not Resolved]
  - White blood cell count decreased [Not Recovered/Not Resolved]
  - Drug-induced liver injury [Not Recovered/Not Resolved]
  - Eye disorder [Not Recovered/Not Resolved]
  - Glaucoma [Not Recovered/Not Resolved]
  - Hernia [Not Recovered/Not Resolved]
  - Herpes zoster [Not Recovered/Not Resolved]
  - Insomnia [Not Recovered/Not Resolved]
  - Joint swelling [Not Recovered/Not Resolved]
  - Mobility decreased [Not Recovered/Not Resolved]
  - Multiple allergies [Not Recovered/Not Resolved]
  - Musculoskeletal pain [Not Recovered/Not Resolved]
  - Myelosuppression [Not Recovered/Not Resolved]
  - Nasopharyngitis [Not Recovered/Not Resolved]
  - Pain in extremity [Not Recovered/Not Resolved]
  - Peripheral swelling [Not Recovered/Not Resolved]
  - Platelet count decreased [Not Recovered/Not Resolved]
  - Psoriatic arthropathy [Not Recovered/Not Resolved]
  - Rash [Not Recovered/Not Resolved]
  - Red blood cell sedimentation rate increased [Not Recovered/Not Resolved]
  - Rheumatic disorder [Not Recovered/Not Resolved]
  - Rheumatoid arthritis [Not Recovered/Not Resolved]
  - Sciatica [Not Recovered/Not Resolved]
  - Sinusitis [Not Recovered/Not Resolved]
  - Skin reaction [Not Recovered/Not Resolved]
  - Weight increased [Not Recovered/Not Resolved]
  - Synovitis [Not Recovered/Not Resolved]
  - Drug intolerance [Not Recovered/Not Resolved]
  - Drug hypersensitivity [Not Recovered/Not Resolved]
  - Contraindicated product administered [Not Recovered/Not Resolved]
  - Alanine aminotransferase increased [Not Recovered/Not Resolved]
  - Blood alkaline phosphatase increased [Not Recovered/Not Resolved]
  - Arthropathy [Not Recovered/Not Resolved]
  - Blood immunoglobulin A decreased [Not Recovered/Not Resolved]
  - Blood immunoglobulin G increased [Not Recovered/Not Resolved]
  - Blood immunoglobulin M increased [Not Recovered/Not Resolved]
  - C-reactive protein abnormal [Not Recovered/Not Resolved]
  - Cystitis [Not Recovered/Not Resolved]
  - Drug resistance [Not Recovered/Not Resolved]
  - Arthritis [Not Recovered/Not Resolved]
  - Gamma-glutamyltransferase increased [Not Recovered/Not Resolved]
  - Hepatic enzyme abnormal [Not Recovered/Not Resolved]
  - Hypoaesthesia [Not Recovered/Not Resolved]
  - Immunodeficiency [Not Recovered/Not Resolved]
  - Loss of personal independence in daily activities [Not Recovered/Not Resolved]
  - Multiple fractures [Not Recovered/Not Resolved]
  - Prescribed underdose [Not Recovered/Not Resolved]
  - Drug ineffective [Not Recovered/Not Resolved]
  - Therapeutic product effect decreased [Not Recovered/Not Resolved]
  - Product use issue [Not Recovered/Not Resolved]
  - Treatment failure [Not Recovered/Not Resolved]
  - Off label use [Not Recovered/Not Resolved]
